FAERS Safety Report 8416281-3 (Version None)
Quarter: 2012Q2

REPORT INFORMATION
  Report Type: 
  Country: None (occurrence: None)
  Receive Date: 20120606
  Receipt Date: 20120525
  Transmission Date: 20120825
  Serious: No
  Sender: FDA-Public Use
  Company Number: US-ELI_LILLY_AND_COMPANY-US201204007675

PATIENT
  Age: 53 Year
  Sex: Male
  Weight: 90.703 kg

DRUGS (15)
  1. OMEPRAZOLE [Concomitant]
  2. SPECIFIC ANTIRHEUMATIC AGENTS [Concomitant]
     Indication: RHEUMATOID ARTHRITIS
     Dosage: UNK, UNKNOWN
  3. LIDODERM [Concomitant]
  4. ACTEMRA [Concomitant]
  5. VITAMIN D [Concomitant]
  6. CYMBALTA [Suspect]
     Indication: FIBROMYALGIA
     Dosage: 60 MG, QD
     Route: 048
     Dates: start: 20111215
  7. DIOVAN [Concomitant]
  8. ASPIRIN [Concomitant]
  9. HYDROXYCHLOROQUINE SULFATE [Concomitant]
  10. CELEBREX [Concomitant]
  11. METHOTREXATE [Concomitant]
  12. MVI                                     /USA/ [Concomitant]
  13. PREDNISONE TAB [Concomitant]
  14. CELLCEPT [Concomitant]
  15. TRAMADOL HCL [Concomitant]

REACTIONS (3)
  - ASPARTATE AMINOTRANSFERASE INCREASED [None]
  - ALANINE AMINOTRANSFERASE INCREASED [None]
  - ANTINUCLEAR ANTIBODY POSITIVE [None]
